FAERS Safety Report 5522144-3 (Version None)
Quarter: 2007Q4

REPORT INFORMATION
  Report Type: 
  Country: None (occurrence: None)
  Receive Date: 20071120
  Receipt Date: 20071108
  Transmission Date: 20080405
  Serious: Yes (Hospitalization)
  Sender: FDA-Public Use
  Company Number: US-ELI_LILLY_AND_COMPANY-US200702003742

PATIENT
  Sex: Female
  Weight: 68.48 kg

DRUGS (18)
  1. TADALAFIL [Suspect]
     Indication: PULMONARY HYPERTENSION
     Dosage: 40 MG, UNK
     Route: 048
     Dates: start: 20070105
  2. PROPOFOL [Concomitant]
     Indication: SEDATION
     Route: 042
  3. FENTANYL [Concomitant]
     Indication: SEDATION
     Route: 042
  4. MIDAZOLAM HCL [Concomitant]
     Indication: SEDATION
     Route: 042
  5. ZOFRAN [Concomitant]
     Route: 042
  6. KETOROLAC [Concomitant]
     Route: 042
  7. DIOVAN /SCH/ [Concomitant]
     Indication: HYPERTENSION
     Dates: start: 20000101
  8. HYDROCHLOROTHIAZIDE [Concomitant]
     Indication: HYPERTENSION
     Dates: start: 20050101
  9. IRON [Concomitant]
     Indication: ANAEMIA
     Dates: start: 19860101
  10. KLONOPIN [Concomitant]
     Indication: DEPRESSION
     Dates: start: 19990101
  11. LOMOTIL [Concomitant]
     Indication: DIARRHOEA
     Dates: start: 20030101
  12. MULTI-VITAMIN [Concomitant]
     Indication: SUPPLEMENTATION THERAPY
     Dates: start: 19910101
  13. CALCIUM WITH VITAMIN D [Concomitant]
     Indication: SUPPLEMENTATION THERAPY
     Dates: start: 20030101
  14. SPIRIVA [Concomitant]
     Indication: CHRONIC OBSTRUCTIVE PULMONARY DISEASE
     Dates: start: 20060101
  15. SYNTHROID [Concomitant]
     Indication: HYPOTHYROIDISM
     Dates: start: 19900101
  16. VICODIN [Concomitant]
     Indication: FIBROMYALGIA
     Dates: start: 20000101
  17. TRAZODONE HCL [Concomitant]
     Indication: DEPRESSION
     Dates: start: 20030101
  18. ZOLOFT [Concomitant]
     Indication: DEPRESSION
     Dates: start: 19950101

REACTIONS (1)
  - DYSTONIA [None]
